FAERS Safety Report 21237854 (Version 2)
Quarter: 2022Q3

REPORT INFORMATION
  Report Type: Report from Study
  Country: CO (occurrence: CO)
  Receive Date: 20220822
  Receipt Date: 20220912
  Transmission Date: 20221027
  Serious: Yes (Life-Threatening, Hospitalization, Other)
  Sender: FDA-Public Use
  Company Number: CO-ABBVIE-22K-036-4511449-00

PATIENT
  Sex: Female
  Weight: 49 kg

DRUGS (2)
  1. ZEMPLAR [Suspect]
     Active Substance: PARICALCITOL
     Indication: Hyperparathyroidism secondary
     Dosage: EVERY OTHER DAY
     Route: 042
     Dates: start: 20220427, end: 202207
  2. ZEMPLAR [Suspect]
     Active Substance: PARICALCITOL
     Indication: Chronic kidney disease

REACTIONS (10)
  - Thrombosis [Recovered/Resolved]
  - Device issue [Recovered/Resolved]
  - Spinal fracture [Recovering/Resolving]
  - Rib fracture [Recovering/Resolving]
  - Clavicle fracture [Recovering/Resolving]
  - Irritable bowel syndrome [Recovered/Resolved]
  - Colitis [Recovered/Resolved]
  - Osteoporosis [Recovering/Resolving]
  - Pain [Recovering/Resolving]
  - Hypertension [Recovering/Resolving]

NARRATIVE: CASE EVENT DATE: 20220101
